FAERS Safety Report 16654815 (Version 4)
Quarter: 2019Q3

REPORT INFORMATION
  Report Type: Spontaneous
  Country: ES (occurrence: ES)
  Receive Date: 20190801
  Receipt Date: 20190923
  Transmission Date: 20191004
  Serious: Yes (Other)
  Sender: FDA-Public Use
  Company Number: ES-AUROBINDO-AUR-APL-2019-043121

PATIENT
  Age: 69 Year
  Sex: Male

DRUGS (9)
  1. VALSARTAN 160MG [Interacting]
     Active Substance: VALSARTAN
     Dosage: (1/0/0)
     Route: 065
  2. SITAGLIPTINA [Suspect]
     Active Substance: SITAGLIPTIN
     Dosage: 50 MILLIGRAM
     Route: 065
  3. NOVONORM [Interacting]
     Active Substance: REPAGLINIDE
     Indication: TYPE 2 DIABETES MELLITUS
     Dosage: 1 MILLIGRAM, ONCE A DAY, 1 MILLIGRAM (1-2-1)
     Route: 065
     Dates: start: 2017
  4. NOVONORM [Interacting]
     Active Substance: REPAGLINIDE
     Dosage: 1MG (1/2/1)
     Route: 048
  5. VALSARTAN 160MG [Suspect]
     Active Substance: VALSARTAN
     Indication: HYPERTENSION
     Dosage: 160 MILLIGRAM, ONCE A DAY (1-0-0)
     Route: 065
     Dates: start: 201905
  6. SITAGLIPTINA [Suspect]
     Active Substance: SITAGLIPTIN
     Indication: TYPE 2 DIABETES MELLITUS
     Dosage: 100 MILLIGRAM, ONCE A DAY (0-1-0)
     Route: 065
     Dates: start: 2017
  7. SITAGLIPTINA [Suspect]
     Active Substance: SITAGLIPTIN
     Dosage: (0/1/0)
     Route: 065
  8. TAMSULOSIN 0.4 MG [Suspect]
     Active Substance: TAMSULOSIN
     Indication: BENIGN PROSTATIC HYPERPLASIA
     Dosage: 0.4 MILLIGRAM, ONCE A DAY (0-0-1)
     Route: 065
     Dates: start: 2017
  9. TAMSULOSIN 0.4 MG [Suspect]
     Active Substance: TAMSULOSIN
     Dosage: (0/0/1)
     Route: 065

REACTIONS (3)
  - Drug interaction [Recovered/Resolved]
  - Hypoglycaemia [Recovered/Resolved]
  - Diabetic metabolic decompensation [Recovered/Resolved]
